FAERS Safety Report 6264264-4 (Version None)
Quarter: 2009Q3

REPORT INFORMATION
  Report Type: 
  Country: None (occurrence: None)
  Receive Date: 20090710
  Receipt Date: 20090701
  Transmission Date: 20100115
  Serious: Yes (Hospitalization, Other)
  Sender: FDA-Public Use
  Company Number: DE-NAPPMUNDI-DEU-2009-0005289

PATIENT
  Sex: Female

DRUGS (7)
  1. OXYCODONE HCL [Suspect]
     Indication: PAIN
     Dosage: 80 MG, DAILY
     Route: 048
     Dates: start: 20090526, end: 20090601
  2. OXYCODONE HCL [Suspect]
     Dosage: 40 MG, DAILY
     Route: 048
     Dates: start: 20090525, end: 20090525
  3. DIGITOXIN TAB [Concomitant]
  4. FALICARD [Concomitant]
  5. ISOSORBIDE DINITRATE [Concomitant]
  6. MOLSIDOMIN [Concomitant]
  7. GODAMED                            /00002701/ [Concomitant]

REACTIONS (1)
  - CEREBROVASCULAR ACCIDENT [None]
